FAERS Safety Report 25644345 (Version 1)
Quarter: 2025Q3

REPORT INFORMATION
  Report Type: Spontaneous
  Country: US (occurrence: US)
  Receive Date: 20250805
  Receipt Date: 20250805
  Transmission Date: 20251021
  Serious: No
  Sender: LUPIN
  Company Number: US-LUPIN PHARMACEUTICALS INC.-2025-06780

PATIENT
  Age: 79 Year
  Weight: 58.503 kg

DRUGS (1)
  1. PREDNISOLONE ACETATE [Suspect]
     Active Substance: PREDNISOLONE ACETATE
     Indication: Eye disorder

REACTIONS (6)
  - Eye pain [Unknown]
  - Eye irritation [Unknown]
  - Vision blurred [Unknown]
  - Conjunctivitis [Unknown]
  - Foreign body sensation in eyes [Unknown]
  - Eye disorder [Unknown]
